FAERS Safety Report 4539754-2 (Version None)
Quarter: 2004Q4

REPORT INFORMATION
  Report Type: 
  Country: None (occurrence: None)
  Receive Date: 20041222
  Receipt Date: 20041215
  Transmission Date: 20050328
  Serious: Yes (Hospitalization)
  Sender: FDA-Public Use
  Company Number: US-GDB-0411585

PATIENT
  Age: 27 Year
  Sex: Female
  Weight: 58.0604 kg

DRUGS (6)
  1. DIFFERIN [Suspect]
     Indication: ACNE
     Dosage: 1 APP QD TP
     Route: 061
     Dates: start: 20040927, end: 20041017
  2. WELLBUTRIN [Suspect]
     Indication: BLOOD OESTROGEN DECREASED
     Dosage: 600 MG QD PO
     Route: 048
     Dates: start: 20041001, end: 20041017
  3. WELLBUTRIN [Suspect]
     Indication: EMOTIONAL DISTRESS
     Dosage: 600 MG QD PO
     Route: 048
     Dates: start: 20041001, end: 20041017
  4. WELLBUTRIN [Suspect]
     Indication: BLOOD OESTROGEN DECREASED
  5. WELLBUTRIN [Suspect]
     Indication: EMOTIONAL DISTRESS
  6. NUVARING [Concomitant]

REACTIONS (3)
  - ANAPHYLACTIC REACTION [None]
  - DRUG HYPERSENSITIVITY [None]
  - GASTROOESOPHAGEAL REFLUX DISEASE [None]
